FAERS Safety Report 6195523-1 (Version None)
Quarter: 2009Q2

REPORT INFORMATION
  Report Type: 
  Country: None (occurrence: None)
  Receive Date: 20090519
  Receipt Date: 20090508
  Transmission Date: 20091009
  Serious: Yes (Hospitalization, Other)
  Sender: FDA-Public Use
  Company Number: PHEH2008US02876

PATIENT
  Sex: Female
  Weight: 88.435 kg

DRUGS (13)
  1. ZOMETA [Suspect]
     Indication: NEOPLASM MALIGNANT
     Dosage: 4 MG, QMO
     Route: 042
     Dates: start: 20030101
  2. ANCEF [Concomitant]
     Dosage: 1 G, UNK
     Dates: start: 20060522
  3. ATIVAN [Concomitant]
  4. VERAPAMIL [Concomitant]
  5. ZOFRAN [Concomitant]
     Dosage: 8 MG, UNK
     Route: 042
     Dates: start: 20060523
  6. TYLENOL [Concomitant]
     Dosage: 975 MG, UNK
     Dates: start: 20060523
  7. CALCIUM GLUCONATE [Concomitant]
     Dosage: UNK
     Dates: start: 20060523
  8. PROCRIT [Concomitant]
     Dosage: 40000 U, UNK
     Dates: start: 20060523
  9. VERSED [Concomitant]
     Dosage: 1 MG, UNK
     Dates: start: 20060523
  10. FENTANYL [Concomitant]
     Dosage: 50 UG, UNK
     Dates: start: 20060523
  11. AREDIA [Suspect]
  12. ARANESP [Concomitant]
  13. CHEMOTHERAPEUTICS NOS [Concomitant]

REACTIONS (32)
  - AFFECTIVE DISORDER [None]
  - ANAEMIA [None]
  - ANXIETY [None]
  - BLOOD PRESSURE INCREASED [None]
  - BONE DISORDER [None]
  - BONE MARROW TRANSPLANT [None]
  - BONE SCAN ABNORMAL [None]
  - BRONCHITIS [None]
  - CATHETER PLACEMENT [None]
  - DEPRESSION [None]
  - EMOTIONAL DISTRESS [None]
  - FACET JOINT SYNDROME [None]
  - GINGIVAL PAIN [None]
  - HEADACHE [None]
  - HYPERTENSION [None]
  - INFLUENZA [None]
  - INJURY [None]
  - INSOMNIA [None]
  - INTERVERTEBRAL DISC DEGENERATION [None]
  - LIFE EXPECTANCY SHORTENED [None]
  - LUMBAR SPINAL STENOSIS [None]
  - MASTICATION DISORDER [None]
  - NAUSEA [None]
  - OSTEONECROSIS [None]
  - OSTEOPOROSIS [None]
  - PAIN [None]
  - PAIN IN JAW [None]
  - SCAR [None]
  - STEM CELL TRANSPLANT [None]
  - SURGERY [None]
  - SYNCOPE [None]
  - THROMBOSIS IN DEVICE [None]
